FAERS Safety Report 7266296-6 (Version None)
Quarter: 2011Q1

REPORT INFORMATION
  Report Type: 
  Country: None (occurrence: None)
  Receive Date: 20110131
  Receipt Date: 20110125
  Transmission Date: 20110831
  Serious: Yes (Other)
  Sender: FDA-Public Use
  Company Number: US-PFIZER INC-2011017956

PATIENT
  Sex: Male
  Weight: 90.7 kg

DRUGS (4)
  1. CLONAZEPAM [Concomitant]
     Dosage: UNK
  2. LIPITOR [Suspect]
     Indication: BLOOD CHOLESTEROL INCREASED
     Dosage: 20 MG, DAILY
  3. PLAVIX [Concomitant]
     Dosage: UNK
  4. NEXIUM [Concomitant]
     Indication: ABDOMINAL DISCOMFORT
     Dosage: UNK

REACTIONS (4)
  - NECK PAIN [None]
  - MUSCULOSKELETAL PAIN [None]
  - ELECTROCARDIOGRAM ABNORMAL [None]
  - CORONARY ARTERY OCCLUSION [None]
